FAERS Safety Report 24148417 (Version 1)
Quarter: 2024Q3

REPORT INFORMATION
  Report Type: Report from Study
  Country: US (occurrence: None)
  Receive Date: 20240729
  Receipt Date: 20240729
  Transmission Date: 20241017
  Serious: Yes (Other)
  Sender: ASTRAZENECA
  Company Number: 2023A146483

PATIENT

DRUGS (1)
  1. FARXIGA [Suspect]
     Active Substance: DAPAGLIFLOZIN PROPANEDIOL
     Dosage: UNKNOWN
     Route: 048

REACTIONS (2)
  - Peripheral arterial occlusive disease [Unknown]
  - Cardiovascular disorder [Unknown]
